FAERS Safety Report 10677809 (Version 3)
Quarter: 2015Q2

REPORT INFORMATION
  Report Type: Spontaneous
  Country: US (occurrence: None)
  Receive Date: 20141223
  Receipt Date: 20150407
  Transmission Date: 20150821
  Serious: Yes (Other)
  Sender: FDA-Public Use
  Company Number: 201412141

PATIENT
  Age: 85 Year
  Sex: Male
  Weight: 79.38 kg

DRUGS (5)
  1. SYNTHROID [Concomitant]
     Active Substance: LEVOTHYROXINE SODIUM
  2. BENICAR [Concomitant]
     Active Substance: OLMESARTAN MEDOXOMIL
  3. OMEPRAZOLE. [Concomitant]
     Active Substance: OMEPRAZOLE
  4. TESTIM [Suspect]
     Active Substance: TESTOSTERONE
     Indication: BLOOD TESTOSTERONE DECREASED
     Dosage: 1 IN 1 D, TRANSDERMAL ???
     Route: 062
     Dates: start: 201301, end: 201304
  5. AMLODIPINE [Concomitant]
     Active Substance: AMLODIPINE BESYLATE

REACTIONS (6)
  - Emotional disorder [None]
  - Injury [None]
  - Cerebrovascular accident [None]
  - Transient ischaemic attack [None]
  - Economic problem [None]
  - Unevaluable event [None]

NARRATIVE: CASE EVENT DATE: 20131109
